FAERS Safety Report 17724621 (Version 1)
Quarter: 2020Q2

REPORT INFORMATION
  Report Type: Spontaneous
  Country: US (occurrence: US)
  Receive Date: 20200429
  Receipt Date: 20200429
  Transmission Date: 20200714
  Serious: Yes (Death)
  Sender: FDA-Public Use
  Company Number: None

PATIENT
  Age: 93 Year
  Sex: Male

DRUGS (3)
  1. N/A [Concomitant]
     Active Substance: UNSPECIFIED INGREDIENT
  2. CYCLOPHOSPHAMIDE. [Suspect]
     Active Substance: CYCLOPHOSPHAMIDE
     Indication: WALDENSTROM^S MACROGLOBULINAEMIA
     Dosage: ?          OTHER FREQUENCY:ON DAY 1,8,15 + 22;?
     Route: 048
     Dates: start: 20200110, end: 20200428
  3. CYCLOPHOSPHAMIDE. [Suspect]
     Active Substance: CYCLOPHOSPHAMIDE
     Indication: PRIMARY AMYLOIDOSIS
     Dosage: ?          OTHER FREQUENCY:ON DAY 1,8,15 + 22;?
     Route: 048
     Dates: start: 20200110, end: 20200428

REACTIONS (1)
  - Death [None]

NARRATIVE: CASE EVENT DATE: 20200428
